FAERS Safety Report 5130067-7 (Version None)
Quarter: 2006Q4

REPORT INFORMATION
  Report Type: 
  Country: None (occurrence: None)
  Receive Date: 20061018
  Receipt Date: 20061011
  Transmission Date: 20070319
  Serious: Yes (Hospitalization)
  Sender: FDA-Public Use
  Company Number: US-ABBOTT-06P-163-0346725-00

PATIENT
  Sex: Female
  Weight: 98.518 kg

DRUGS (14)
  1. HUMIRA [Suspect]
     Indication: RHEUMATOID ARTHRITIS
     Route: 058
     Dates: start: 20050101
  2. METHOTREXATE [Suspect]
     Indication: RHEUMATOID ARTHRITIS
     Route: 048
     Dates: start: 19960101
  3. ZOLPIDEM TARTRATE [Concomitant]
     Indication: INSOMNIA
     Route: 048
     Dates: start: 20060701
  4. ROPINIROLE HCL [Concomitant]
     Indication: RESTLESS LEGS SYNDROME
     Route: 048
  5. MICARDIS [Concomitant]
     Indication: BLOOD PRESSURE
     Dates: start: 20040101
  6. ENABLEX [Concomitant]
     Indication: URINARY INCONTINENCE
     Dates: start: 20040101
  7. OXYBUTYNIN CHLORIDE [Concomitant]
     Indication: URINARY INCONTINENCE
     Dates: start: 20040101
  8. METFORMIN HCL [Concomitant]
     Indication: DIABETES MELLITUS
     Dates: start: 20050101
  9. ROSIGLITAZONE MALEATE [Concomitant]
     Indication: DIABETES MELLITUS
     Dates: start: 20000101
  10. GLIPIZIDE [Concomitant]
     Indication: DIABETES MELLITUS
     Dates: start: 20000101
  11. CALCIUM FOLINATE [Concomitant]
     Indication: VITAMIN SUPPLEMENTATION
     Dates: start: 20000101
  12. HYDROXYCHLOROQUINE PHOSPHATE [Concomitant]
     Indication: RHEUMATOID ARTHRITIS
     Dates: start: 19960101
  13. ESTRASE [Concomitant]
     Indication: HORMONE THERAPY
  14. ESOMEPRAZOLE MAGNESIUM [Concomitant]
     Indication: ANTACID THERAPY

REACTIONS (2)
  - DYSPNOEA [None]
  - HEART RATE DECREASED [None]
